FAERS Safety Report 9059855 (Version 4)
Quarter: 2013Q2

REPORT INFORMATION
  Report Type: Spontaneous
  Country: GB (occurrence: GB)
  Receive Date: 20130212
  Receipt Date: 20130521
  Transmission Date: 20140414
  Serious: Yes (Hospitalization, Other)
  Sender: FDA-Public Use
  Company Number: GB-JNJFOC-20130201635

PATIENT
  Age: 43 Year
  Sex: Female

DRUGS (2)
  1. STELARA [Suspect]
     Indication: PSORIASIS
     Route: 058
     Dates: start: 20121005, end: 20130201
  2. STELARA [Suspect]
     Indication: PSORIASIS
     Route: 058

REACTIONS (4)
  - White blood cell count decreased [Recovered/Resolved]
  - Headache [Recovering/Resolving]
  - Constipation [Recovering/Resolving]
  - Influenza like illness [Recovered/Resolved]
